FAERS Safety Report 10249992 (Version 1)
Quarter: 2014Q2

REPORT INFORMATION
  Report Type: Spontaneous
  Country: US (occurrence: US)
  Receive Date: 20140620
  Receipt Date: 20140620
  Transmission Date: 20141212
  Serious: Yes (Other)
  Sender: FDA-Public Use
  Company Number: US-PFIZER INC-2014166863

PATIENT
  Age: 50 Year
  Sex: Male
  Weight: 86.17 kg

DRUGS (4)
  1. CELEBREX [Suspect]
     Indication: ANKYLOSING SPONDYLITIS
     Dosage: 200 MG, 2X/DAY
     Dates: end: 2007
  2. DIMENHYDRINATE [Concomitant]
     Indication: DIZZINESS
     Dosage: 25 MG, AS NEEDED
  3. DIMENHYDRINATE [Concomitant]
     Indication: PROPHYLAXIS
  4. DIMENHYDRINATE [Concomitant]
     Indication: MIGRAINE

REACTIONS (2)
  - Atrial fibrillation [Recovered/Resolved]
  - Dizziness [Not Recovered/Not Resolved]
